FAERS Safety Report 9727503 (Version 2)
Quarter: 2013Q4

REPORT INFORMATION
  Report Type: Report from Study
  Country: DE (occurrence: DE)
  Receive Date: 20131203
  Receipt Date: 20131204
  Transmission Date: 20140711
  Serious: Yes (Other)
  Sender: FDA-Public Use
  Company Number: DE-ABBVIE-13P-062-1175548-00

PATIENT
  Age: 71 Year
  Sex: Male

DRUGS (2)
  1. LEUPRORELIN [Suspect]
     Indication: PROSTATE CANCER METASTATIC
     Dates: start: 20120806
  2. BICALUTIN [Concomitant]
     Indication: PRODUCT USED FOR UNKNOWN INDICATION
     Dates: start: 20120806, end: 20121112

REACTIONS (5)
  - Cardiac failure [Unknown]
  - Blood creatinine increased [Recovering/Resolving]
  - Haemoglobin decreased [Not Recovered/Not Resolved]
  - Blood alkaline phosphatase increased [Recovering/Resolving]
  - Blood lactate dehydrogenase increased [Recovering/Resolving]
